FAERS Safety Report 25049094 (Version 3)
Quarter: 2025Q1

REPORT INFORMATION
  Report Type: Spontaneous
  Country: PT (occurrence: PT)
  Receive Date: 20250307
  Receipt Date: 20250314
  Transmission Date: 20250409
  Serious: Yes (Other)
  Sender: ASTELLAS
  Company Number: PT-ASTELLAS-2025-AER-012173

PATIENT
  Age: 64 Year
  Sex: Female

DRUGS (1)
  1. ENFORTUMAB VEDOTIN [Suspect]
     Active Substance: ENFORTUMAB VEDOTIN
     Indication: Transitional cell carcinoma metastatic
     Route: 065
     Dates: start: 20240813

REACTIONS (5)
  - Necrosis [Unknown]
  - Malignant neoplasm progression [Unknown]
  - Bladder cancer recurrent [Unknown]
  - Vaginal discharge [Recovering/Resolving]
  - Female genital tract fistula [Unknown]

NARRATIVE: CASE EVENT DATE: 20241101
